FAERS Safety Report 24140425 (Version 2)
Quarter: 2024Q3

REPORT INFORMATION
  Report Type: Spontaneous
  Country: AU (occurrence: AU)
  Receive Date: 20240726
  Receipt Date: 20240802
  Transmission Date: 20241017
  Serious: Yes (Hospitalization)
  Sender: ORGANON
  Company Number: AU-MYLANLABS-2024M1052322

PATIENT
  Age: 41 Year
  Sex: Male

DRUGS (7)
  1. MIRTAZAPINE [Suspect]
     Active Substance: MIRTAZAPINE
     Indication: Depression
     Dosage: 45 MILLIGRAM
  2. CLOMIPRAMINE HYDROCHLORIDE [Suspect]
     Active Substance: CLOMIPRAMINE HYDROCHLORIDE
     Indication: Depression
     Dosage: 150 MILLIGRAM
  3. DIAZEPAM [Suspect]
     Active Substance: DIAZEPAM
     Indication: Depression
     Dosage: 5 MILLIGRAM, PRN, (AS NEEDED)
  4. DIAZEPAM [Suspect]
     Active Substance: DIAZEPAM
     Indication: Alcohol withdrawal syndrome
  5. AMITRIPTYLINE [Suspect]
     Active Substance: AMITRIPTYLINE
     Indication: Depression
     Dosage: 150 MILLIGRAM
  6. CITALOPRAM HYDROBROMIDE [Suspect]
     Active Substance: CITALOPRAM HYDROBROMIDE
     Indication: Depression
     Dosage: 400 MILLIGRAM
  7. SERTRALINE HYDROCHLORIDE [Suspect]
     Active Substance: SERTRALINE HYDROCHLORIDE
     Indication: Depression
     Dosage: 100 MILLIGRAM

REACTIONS (1)
  - Drug ineffective [Unknown]
